FAERS Safety Report 6693883-6 (Version None)
Quarter: 2010Q2

REPORT INFORMATION
  Report Type: 
  Country: None (occurrence: None)
  Receive Date: 20100423
  Receipt Date: 20100414
  Transmission Date: 20101027
  Serious: Yes (Other)
  Sender: FDA-Public Use
  Company Number: PHHY2010ES23088

PATIENT
  Age: 65 Year
  Sex: Female

DRUGS (1)
  1. CO-VALS [Suspect]
     Dosage: UNK
     Route: 048
     Dates: start: 20090308, end: 20091022

REACTIONS (3)
  - DIZZINESS [None]
  - MALAISE [None]
  - TINNITUS [None]
